FAERS Safety Report 6489717-5 (Version None)
Quarter: 2009Q4

REPORT INFORMATION
  Report Type: 
  Country: None (occurrence: None)
  Receive Date: 20091207
  Receipt Date: 20091109
  Transmission Date: 20100525
  Serious: Yes (Other)
  Sender: FDA-Public Use
  Company Number: 2009-00013

PATIENT
  Age: 31 Year
  Sex: Female

DRUGS (1)
  1. NEUTROGENA NOURSHING EYE QUAD SPF 15 VINTAGE WINE [Suspect]
     Dosage: TOPICALLY
     Route: 061
     Dates: start: 20090904

REACTIONS (1)
  - CELLULITIS [None]
